FAERS Safety Report 5776017-1 (Version None)
Quarter: 2008Q2

REPORT INFORMATION
  Report Type: 
  Country: None (occurrence: None)
  Receive Date: 20080617
  Receipt Date: 20080610
  Transmission Date: 20081010
  Serious: Yes (Other)
  Sender: FDA-Public Use
  Company Number: CA-ALLERGAN-0807034US

PATIENT
  Sex: Female

DRUGS (7)
  1. BOTOX [Suspect]
     Indication: DRUG USE FOR UNKNOWN INDICATION
  2. ALPRAZOLAM [Concomitant]
     Dosage: 0.5 MG, QID
     Route: 048
  3. ASCORBIC ACID [Concomitant]
  4. VITAMIN E [Concomitant]
  5. CALCIUM [Concomitant]
  6. WARFARIN SODIUM [Concomitant]
  7. VITAMIN D [Concomitant]

REACTIONS (2)
  - DERMATITIS BULLOUS [None]
  - PEMPHIGOID [None]
